FAERS Safety Report 9267601 (Version 2)
Quarter: 2013Q4

REPORT INFORMATION
  Report Type: Spontaneous
  Country: US (occurrence: US)
  Receive Date: 20130502
  Receipt Date: 20131118
  Transmission Date: 20140711
  Serious: Yes (Hospitalization)
  Sender: FDA-Public Use
  Company Number: US-B.I. PHARMACEUTICALS,INC./RIDGEFIELD-2013-BI-11413BP

PATIENT
  Age: 62 Year
  Sex: Male
  Weight: 104 kg

DRUGS (5)
  1. MICARDIS [Suspect]
     Indication: HYPERTENSION
     Dosage: 80 MG
     Route: 048
     Dates: start: 201206
  2. SIMVISTATIN [Concomitant]
     Indication: BLOOD CHOLESTEROL INCREASED
     Dosage: 30 MG
     Route: 048
  3. TRIAMTERENE [Concomitant]
     Indication: FLUID RETENTION
     Dosage: 25 MG
     Route: 048
     Dates: start: 201204
  4. TRIAMTERENE [Concomitant]
  5. PREDNISONE [Concomitant]
     Indication: RENAL DISORDER
     Dosage: 5 MG
     Route: 048

REACTIONS (13)
  - Bile duct obstruction [Not Recovered/Not Resolved]
  - Pancreatic carcinoma [Not Recovered/Not Resolved]
  - Renal impairment [Not Recovered/Not Resolved]
  - Asthenia [Not Recovered/Not Resolved]
  - Vision blurred [Recovered/Resolved]
  - Blood pressure decreased [Recovered/Resolved]
  - Fall [Recovered/Resolved]
  - Blood pressure increased [Recovered/Resolved]
  - Muscle spasms [Not Recovered/Not Resolved]
  - Tremor [Not Recovered/Not Resolved]
  - Jaundice [Not Recovered/Not Resolved]
  - Abnormal loss of weight [Not Recovered/Not Resolved]
  - Hypotonia [Not Recovered/Not Resolved]
